FAERS Safety Report 25129772 (Version 1)
Quarter: 2025Q1

REPORT INFORMATION
  Report Type: Report from Study
  Country: CA (occurrence: CA)
  Receive Date: 20250327
  Receipt Date: 20250327
  Transmission Date: 20250408
  Serious: Yes (Other)
  Sender: TAKEDA
  Company Number: CA-TAKEDA-2025TUS027484

PATIENT
  Sex: Female

DRUGS (2)
  1. VEDOLIZUMAB [Suspect]
     Active Substance: VEDOLIZUMAB
     Indication: Crohn^s disease
  2. IMURAN [Concomitant]
     Active Substance: AZATHIOPRINE

REACTIONS (3)
  - Crohn^s disease [Not Recovered/Not Resolved]
  - Anal fissure [Not Recovered/Not Resolved]
  - Arthralgia [Not Recovered/Not Resolved]
